FAERS Safety Report 7455290-8 (Version None)
Quarter: 2011Q2

REPORT INFORMATION
  Report Type: 
  Country: None (occurrence: None)
  Receive Date: 20110503
  Receipt Date: 20110429
  Transmission Date: 20111010
  Serious: Yes (Other)
  Sender: FDA-Public Use
  Company Number: US-SANOFI-AVENTIS-2011SA015608

PATIENT
  Age: 79 Year
  Sex: Female

DRUGS (3)
  1. DABIGATRAN ETEXILATE [Concomitant]
  2. CRESTOR [Concomitant]
  3. MULTAQ [Suspect]
     Indication: ATRIAL FIBRILLATION
     Route: 048
     Dates: start: 20110309, end: 20110404

REACTIONS (6)
  - ATRIAL FIBRILLATION [None]
  - DRUG INEFFECTIVE [None]
  - VENTRICULAR EXTRASYSTOLES [None]
  - VENTRICULAR TACHYCARDIA [None]
  - EXTRASYSTOLES [None]
  - ARRHYTHMIA SUPRAVENTRICULAR [None]
